FAERS Safety Report 8967036 (Version 1)
Quarter: 2012Q4

REPORT INFORMATION
  Report Type: 
  Country: US (occurrence: US)
  Receive Date: 20121217
  Receipt Date: 20121217
  Transmission Date: 20130627
  Serious: Yes (Hospitalization)
  Sender: FDA-Public Use
  Company Number: PHEH2012US024478

PATIENT

DRUGS (1)
  1. CLOZARIL [Suspect]

REACTIONS (2)
  - Psychotic disorder [Unknown]
  - Thinking abnormal [Unknown]
